FAERS Safety Report 14367114 (Version 2)
Quarter: 2018Q1

REPORT INFORMATION
  Report Type: Spontaneous
  Country: US (occurrence: US)
  Receive Date: 20180109
  Receipt Date: 20180122
  Transmission Date: 20180509
  Serious: Yes (Life-Threatening, Other)
  Sender: FDA-Public Use
  Company Number: US-ASTELLAS-2018US000901

PATIENT
  Age: 55 Year
  Sex: Female

DRUGS (3)
  1. LEXISCAN [Suspect]
     Active Substance: REGADENOSON
     Indication: CARDIAC STRESS TEST
     Dosage: UNK, UNKNOWN FREQ.
     Route: 042
     Dates: start: 20170802, end: 20170802
  2. LEXISCAN [Suspect]
     Active Substance: REGADENOSON
     Indication: SCAN MYOCARDIAL PERFUSION
  3. LEXISCAN [Suspect]
     Active Substance: REGADENOSON
     Indication: COMPUTERISED TOMOGRAM ABDOMEN

REACTIONS (4)
  - Haemoptysis [Unknown]
  - Off label use [Unknown]
  - Respiratory arrest [Unknown]
  - Aphasia [Unknown]

NARRATIVE: CASE EVENT DATE: 20170802
